FAERS Safety Report 8449145-X (Version None)
Quarter: 2012Q2

REPORT INFORMATION
  Report Type: 
  Country: None (occurrence: None)
  Receive Date: 20120612
  Receipt Date: 20120529
  Transmission Date: 20120825
  Serious: Yes (Other)
  Sender: FDA-Public Use
  Company Number: 2012P1036227

PATIENT
  Age: 56 Year
  Sex: Female
  Weight: 58 kg

DRUGS (4)
  1. LIDOCAINE [Suspect]
     Indication: LOCAL ANAESTHESIA
     Dosage: 10 ML
  2. MIDAZOLAM [Concomitant]
  3. BUPIVACAINE HCL [Suspect]
     Indication: LOCAL ANAESTHESIA
     Dosage: 10 MG
  4. AMLODIPINE [Concomitant]

REACTIONS (8)
  - WHEEZING [None]
  - PERIPHERAL NERVE PARESIS [None]
  - DYSPNOEA [None]
  - BLOOD PRESSURE INCREASED [None]
  - TACHYPNOEA [None]
  - TACHYCARDIA [None]
  - OXYGEN SATURATION DECREASED [None]
  - RESTLESSNESS [None]
